FAERS Safety Report 23629647 (Version 1)
Quarter: 2024Q1

REPORT INFORMATION
  Report Type: Spontaneous
  Country: US (occurrence: US)
  Receive Date: 20240314
  Receipt Date: 20240314
  Transmission Date: 20240409
  Serious: No
  Sender: FDA-Public Use
  Company Number: US-BRISTOL-MYERS SQUIBB COMPANY-2024-039021

PATIENT
  Age: 68 Year
  Sex: Male
  Weight: 79.83 kg

DRUGS (1)
  1. REVLIMID [Suspect]
     Active Substance: LENALIDOMIDE
     Indication: Plasma cell myeloma
     Route: 048

REACTIONS (6)
  - Paraesthesia [Unknown]
  - Peripheral swelling [Unknown]
  - Decreased appetite [Unknown]
  - Taste disorder [Unknown]
  - Increased upper airway secretion [Unknown]
  - Off label use [Unknown]

NARRATIVE: CASE EVENT DATE: 20240309
